FAERS Safety Report 21683216 (Version 2)
Quarter: 2023Q4

REPORT INFORMATION
  Report Type: Report from Study
  Country: FR (occurrence: FR)
  Receive Date: 20221205
  Receipt Date: 20231103
  Transmission Date: 20240110
  Serious: Yes (Death, Other)
  Sender: FDA-Public Use
  Company Number: FR-JNJFOC-20221157913

PATIENT
  Age: 71 Year
  Sex: Female

DRUGS (3)
  1. BORTEZOMIB [Suspect]
     Active Substance: BORTEZOMIB
     Indication: Plasma cell myeloma
     Dosage: 2.3 MILLIGRAM, 2/WEEK
     Route: 065
     Dates: end: 20201122
  2. DEXAMETHASONE [Suspect]
     Active Substance: DEXAMETHASONE
     Indication: Plasma cell myeloma
     Dosage: 40 MILLIGRAM, 2/WEEK
     Route: 065
     Dates: end: 20201122
  3. LENALIDOMIDE [Suspect]
     Active Substance: LENALIDOMIDE
     Indication: Plasma cell myeloma
     Dosage: 25 MILLIGRAM
     Route: 065
     Dates: end: 20201122

REACTIONS (4)
  - COVID-19 pneumonia [Fatal]
  - Acute respiratory distress syndrome [Fatal]
  - Off label use [Unknown]
  - Intentional product use issue [Unknown]
